FAERS Safety Report 9357893 (Version 8)
Quarter: 2014Q1

REPORT INFORMATION
  Report Type: Report from Study
  Country: US (occurrence: US)
  Receive Date: 20130620
  Receipt Date: 20140320
  Transmission Date: 20141002
  Serious: Yes (Death, Hospitalization)
  Sender: FDA-Public Use
  Company Number: US-BRISTOL-MYERS SQUIBB COMPANY-19012731

PATIENT
  Age: 84 Year
  Sex: Male
  Weight: 105.2 kg

DRUGS (15)
  1. IPILIMUMAB [Suspect]
     Indication: METASTATIC MALIGNANT MELANOMA
     Dosage: 316 MG PER DOSE; INTERR 5JUN13?YERVOY:3MG/KG:05JUN2013
     Route: 042
     Dates: start: 20130516
  2. ZONEGRAN [Concomitant]
     Dates: start: 20110815
  3. CALCIUM CARBONATE [Concomitant]
     Dates: start: 20110815
  4. LAMOTRIGINE [Concomitant]
     Dates: start: 20110824
  5. LEVETIRACETAM [Concomitant]
     Dates: start: 20110824
  6. ANCEF [Concomitant]
     Dates: start: 20130530, end: 20130530
  7. FENTANYL [Concomitant]
     Dates: start: 20130530, end: 20130530
  8. HEPARIN [Concomitant]
     Dates: start: 20130530, end: 20130530
  9. LIDOCAINE [Concomitant]
     Dates: start: 20130530, end: 20130530
  10. VERSED [Concomitant]
     Dates: start: 20130530, end: 20130530
  11. LOMOTIL [Concomitant]
     Dates: start: 20130611
  12. SODIUM CHLORIDE [Concomitant]
     Dates: start: 20130612, end: 20130612
  13. CEFEPIME HCL [Concomitant]
  14. AZITHROMYCIN [Concomitant]
  15. POTASSIUM CHLORIDE [Concomitant]

REACTIONS (7)
  - Malignant neoplasm progression [Fatal]
  - Hyponatraemia [Fatal]
  - Fatigue [Fatal]
  - Decreased appetite [Fatal]
  - Malaise [Fatal]
  - Diarrhoea [Recovered/Resolved with Sequelae]
  - Dehydration [Recovered/Resolved with Sequelae]
